FAERS Safety Report 16025858 (Version 1)
Quarter: 2019Q1

REPORT INFORMATION
  Report Type: Spontaneous
  Country: FR (occurrence: FR)
  Receive Date: 20190302
  Receipt Date: 20190302
  Transmission Date: 20190418
  Serious: Yes (Other)
  Sender: FDA-Public Use
  Company Number: FR-AUROBINDO-AUR-APL-2019-009398

PATIENT

DRUGS (5)
  1. APREPITANT. [Suspect]
     Active Substance: APREPITANT
     Indication: ANTIEMETIC SUPPORTIVE CARE
     Dosage: 125MG AVT CHIMIO ET 80MG J1 ET J2
     Route: 048
     Dates: start: 20180208
  2. ONDANSETRON [Suspect]
     Active Substance: ONDANSETRON
     Indication: ANTIEMETIC SUPPORTIVE CARE
     Dosage: JOUR DE LA CHIMIOTH?RAPIE
     Route: 048
     Dates: start: 20180208, end: 20180208
  3. OXALIPLATINE ACCORD [Suspect]
     Active Substance: OXALIPLATIN
     Indication: MALIGNANT PERITONEAL NEOPLASM
     Dosage: 217 MILLIGRAM
     Route: 042
     Dates: start: 20180208
  4. PREDNISONE. [Suspect]
     Active Substance: PREDNISONE
     Indication: ANTIEMETIC SUPPORTIVE CARE
     Dosage: LE JOUR DE LA CHIMIO
     Route: 048
     Dates: start: 20180208
  5. TOMUDEX [Suspect]
     Active Substance: RALTITREXED
     Indication: MALIGNANT PERITONEAL NEOPLASM
     Dosage: 5 MILLIGRAM
     Route: 040
     Dates: start: 20180208, end: 20180208

REACTIONS (3)
  - Hot flush [Recovered/Resolved]
  - Hypotension [Recovered/Resolved]
  - Feeling abnormal [Recovered/Resolved]

NARRATIVE: CASE EVENT DATE: 20180208
